FAERS Safety Report 5001728-5 (Version None)
Quarter: 2006Q2

REPORT INFORMATION
  Report Type: 
  Country: None (occurrence: None)
  Receive Date: 20060515
  Receipt Date: 20060502
  Transmission Date: 20061013
  Serious: Yes (Hospitalization)
  Sender: FDA-Public Use
  Company Number: GB-AMGEN-UK178339

PATIENT
  Sex: Female

DRUGS (1)
  1. ARANESP [Suspect]
     Indication: RENAL FAILURE CHRONIC
     Route: 042

REACTIONS (5)
  - ANAPHYLACTOID REACTION [None]
  - ERYTHEMA [None]
  - HYPOTENSION [None]
  - THROAT TIGHTNESS [None]
  - URTICARIA [None]
